FAERS Safety Report 9669633 (Version 1)
Quarter: 2013Q4

REPORT INFORMATION
  Report Type: Spontaneous
  Country: CA (occurrence: None)
  Receive Date: 20131101
  Receipt Date: 20131101
  Transmission Date: 20140711
  Serious: Yes (Hospitalization)
  Sender: FDA-Public Use
  Company Number: 2013AP009403

PATIENT
  Age: 23 Year
  Sex: Female

DRUGS (4)
  1. CITALOPRAM(CITALOPRAM) [Suspect]
     Indication: POSTPARTUM DEPRESSION
  2. RISPERIDONE (RISPERIDONE) [Suspect]
     Indication: POSTPARTUM DEPRESSION
  3. OLANZAPINE (OLANZAPINE) [Suspect]
     Indication: POSTPARTUM DEPRESSION
  4. BUPROPION (BUPROPION) [Suspect]
     Indication: POSTPARTUM DEPRESSION

REACTIONS (3)
  - Psychotic disorder [None]
  - Tachyphrenia [None]
  - Agitation [None]
